FAERS Safety Report 7134165 (Version 3)
Quarter: 2015Q2

REPORT INFORMATION
  Report Type: Spontaneous
  Country: US (occurrence: US)
  Receive Date: 20090929
  Receipt Date: 20150507
  Transmission Date: 20150821
  Serious: Yes (Death, Hospitalization, Other)
  Sender: FDA-Public Use
  Company Number: US-AMGEN-US365854

PATIENT
  Age: 3 Year
  Sex: Male
  Weight: 15 kg

DRUGS (5)
  1. ENBREL [Suspect]
     Active Substance: ETANERCEPT
     Indication: JUVENILE IDIOPATHIC ARTHRITIS
     Dosage: 12.5-25 MG WEEKLY
     Route: 058
     Dates: start: 20080927, end: 200902
  2. NAPROSYN [Concomitant]
     Active Substance: NAPROXEN
     Dosage: UNK
  3. INFLIXIMAB [Suspect]
     Active Substance: INFLIXIMAB
     Indication: JUVENILE IDIOPATHIC ARTHRITIS
     Dosage: 100-300 MG MONTHLY
     Route: 042
  4. METHOTREXATE [Concomitant]
     Active Substance: METHOTREXATE
     Dosage: UNK UNK, UNK
  5. PREDNISOLONE. [Concomitant]
     Active Substance: PREDNISOLONE
     Dosage: UNK

REACTIONS (1)
  - Disseminated tuberculosis [Fatal]
